FAERS Safety Report 9845210 (Version 3)
Quarter: 2014Q1

REPORT INFORMATION
  Report Type: Spontaneous
  Country: JP (occurrence: JP)
  Receive Date: 20140127
  Receipt Date: 20140303
  Transmission Date: 20141002
  Serious: Yes (Life-Threatening)
  Sender: FDA-Public Use
  Company Number: US-ASTRAZENECA-2013SE93241

PATIENT
  Age: 67 Year
  Sex: Male
  Weight: 60 kg

DRUGS (10)
  1. CUBICIN [Suspect]
     Indication: STAPHYLOCOCCAL INFECTION
     Route: 041
     Dates: start: 20131129, end: 20131206
  2. MEROPEN [Suspect]
     Indication: STAPHYLOCOCCAL SEPSIS
     Route: 041
     Dates: start: 20131127, end: 20131206
  3. FUNGUARD [Suspect]
     Indication: FUNGAL INFECTION
     Route: 041
     Dates: start: 201311, end: 20131206
  4. TEICOPLANIN [Concomitant]
     Indication: STAPHYLOCOCCAL INFECTION
     Route: 041
     Dates: start: 20131127, end: 20131128
  5. BFLUID [Concomitant]
     Indication: NUTRITIONAL SUPPLEMENTATION
     Route: 041
     Dates: start: 20131129, end: 20140110
  6. LASIX [Concomitant]
     Route: 048
  7. MIYA BM [Concomitant]
     Route: 048
  8. TAKEPRON [Concomitant]
     Route: 048
  9. MUCODYNE [Concomitant]
     Route: 048
  10. MUCOSOLVAN [Concomitant]
     Route: 048

REACTIONS (1)
  - Bone marrow failure [Recovered/Resolved]
